FAERS Safety Report 7745405-6 (Version None)
Quarter: 2011Q3

REPORT INFORMATION
  Report Type: 
  Country: None (occurrence: None)
  Receive Date: 20110913
  Receipt Date: 20110907
  Transmission Date: 20111222
  Serious: Yes (Hospitalization)
  Sender: FDA-Public Use
  Company Number: US-GENZYME-CERZ-1002234

PATIENT
  Sex: Female

DRUGS (1)
  1. CEREZYME [Suspect]
     Indication: GAUCHER'S DISEASE
     Dosage: UNK UNK, UNK
     Route: 042
     Dates: start: 20050901

REACTIONS (2)
  - RESPIRATORY ARREST [None]
  - PULSE ABSENT [None]
